FAERS Safety Report 5601506-X (Version None)
Quarter: 2008Q1

REPORT INFORMATION
  Report Type: 
  Country: None (occurrence: None)
  Receive Date: 20080124
  Receipt Date: 20070906
  Transmission Date: 20080703
  Serious: No
  Sender: FDA-Public Use
  Company Number: US-BAYER-200711536BCC

PATIENT
  Age: 29 Year
  Sex: Female

DRUGS (2)
  1. ALEVE COLD AND SINUS [Suspect]
     Indication: MULTIPLE ALLERGIES
     Route: 048
  2. ALEVE COLD AND SINUS [Suspect]
     Indication: HYPERSENSITIVITY
     Route: 048
     Dates: start: 20061001

REACTIONS (3)
  - DECREASED APPETITE [None]
  - INCREASED APPETITE [None]
  - WEIGHT DECREASED [None]
